FAERS Safety Report 9015250 (Version 1)
Quarter: 2013Q1

REPORT INFORMATION
  Report Type: Spontaneous
  Country: US (occurrence: None)
  Receive Date: 20130109
  Receipt Date: 20130109
  Transmission Date: 20140127
  Serious: Yes (Other)
  Sender: FDA-Public Use
  Company Number: None

PATIENT
  Sex: Female
  Weight: 98.88 kg

DRUGS (1)
  1. LOSARTAN [Suspect]
     Indication: BLOOD PRESSURE
     Dosage: 1 TABLET DAILY PO
     Route: 048
     Dates: start: 20120401, end: 20121227

REACTIONS (12)
  - Back pain [None]
  - Pain in extremity [None]
  - Muscle spasms [None]
  - Cough [None]
  - Pharyngeal disorder [None]
  - Diarrhoea [None]
  - Drug ineffective [None]
  - Choking [None]
  - Chest pain [None]
  - Product quality issue [None]
  - Product substitution issue [None]
  - Product substitution issue [None]
